FAERS Safety Report 11652436 (Version 2)
Quarter: 2015Q4

REPORT INFORMATION
  Report Type: Report from Study
  Country: US (occurrence: US)
  Receive Date: 20151022
  Receipt Date: 20151026
  Transmission Date: 20160304
  Serious: No
  Sender: FDA-Public Use
  Company Number: US-ABBVIE-08P-163-0489871-00

PATIENT
  Sex: Female
  Weight: 95.34 kg

DRUGS (2)
  1. BIAXIN [Suspect]
     Active Substance: CLARITHROMYCIN
  2. BIAXIN [Suspect]
     Active Substance: CLARITHROMYCIN
     Indication: INFECTION
     Dates: start: 1998, end: 1998

REACTIONS (3)
  - Abdominal discomfort [Recovered/Resolved]
  - Abdominal discomfort [Recovered/Resolved]
  - Vomiting [Recovered/Resolved]

NARRATIVE: CASE EVENT DATE: 1998
